FAERS Safety Report 6091707-1 (Version None)
Quarter: 2009Q1

REPORT INFORMATION
  Report Type: 
  Country: None (occurrence: None)
  Receive Date: 20090225
  Receipt Date: 20080421
  Transmission Date: 20090719
  Serious: No
  Sender: FDA-Public Use
  Company Number: A0723879A

PATIENT
  Age: 60 Year
  Sex: Male

DRUGS (3)
  1. VALTREX [Suspect]
     Dosage: 500MG TWICE PER DAY
     Route: 048
     Dates: start: 20080417
  2. MOUTHWASH [Concomitant]
  3. PREVACID [Concomitant]

REACTIONS (1)
  - PYREXIA [None]
